FAERS Safety Report 9945213 (Version 1)
Quarter: 2014Q1

REPORT INFORMATION
  Report Type: Report from Study
  Country: US (occurrence: US)
  Receive Date: 20140303
  Receipt Date: 20140303
  Transmission Date: 20141002
  Serious: No
  Sender: FDA-Public Use
  Company Number: US-ABBVIE-13P-163-1053489-00

PATIENT
  Age: 58 Year
  Sex: Female
  Weight: 51.76 kg

DRUGS (7)
  1. HUMIRA [Suspect]
     Indication: CROHN^S DISEASE
     Dates: start: 2012, end: 2012
  2. HUMIRA [Suspect]
     Indication: COLITIS ULCERATIVE
  3. HUMIRA [Suspect]
  4. HUMIRA [Suspect]
     Dates: start: 2012
  5. LYRICA [Concomitant]
     Indication: OSTEOARTHRITIS
  6. LYRICA [Concomitant]
     Indication: RESTLESS LEGS SYNDROME
  7. PRILOSEC [Concomitant]
     Indication: DYSPEPSIA

REACTIONS (4)
  - Pyrexia [Recovered/Resolved]
  - Upper respiratory tract infection [Not Recovered/Not Resolved]
  - Ear discomfort [Not Recovered/Not Resolved]
  - Drug ineffective [Recovered/Resolved]
